FAERS Safety Report 18117518 (Version 1)
Quarter: 2020Q3

REPORT INFORMATION
  Report Type: Spontaneous
  Country: ES (occurrence: ES)
  Receive Date: 20200806
  Receipt Date: 20200806
  Transmission Date: 20201103
  Serious: Yes (Other)
  Sender: FDA-Public Use
  Company Number: ES-TEVA-2020-ES-1809415

PATIENT
  Age: 78 Year
  Sex: Female

DRUGS (8)
  1. ALENDRONICO ACIDO 70MG COMP SEMANAL C/4 [Concomitant]
     Indication: OSTEOPOROSIS
     Dosage: 70 MG
     Route: 048
     Dates: start: 20190511
  2. SIMVASTATINA 20 MG 28 COMPRIMIDOS [Concomitant]
     Active Substance: SIMVASTATIN
     Indication: TYPE IIA HYPERLIPIDAEMIA
     Dosage: 20 MG
     Route: 048
     Dates: start: 20190510
  3. NOCTAMID 1 MG COMPRIMIDOS , 30 COMPRIMIDOS [Concomitant]
     Active Substance: LORMETAZEPAM
     Indication: PRODUCT USED FOR UNKNOWN INDICATION
     Dosage: 1 MG
     Route: 048
     Dates: start: 20091009
  4. METFORMINA 850 MG 50 COMPRIMIDOS [Concomitant]
     Active Substance: METFORMIN HYDROCHLORIDE
     Indication: TYPE 2 DIABETES MELLITUS
     Dosage: 850 MG
     Route: 048
     Dates: start: 20200624
  5. TRAMADOL 50 MG 20 CAPSULAS LIBERACION MODIFICADA (12 H) (PRODUCT) [Suspect]
     Active Substance: TRAMADOL
     Indication: BACK PAIN
     Route: 048
     Dates: start: 20200624, end: 20200626
  6. PREDNISONA 30 MG COMPRIMIDO [Interacting]
     Active Substance: PREDNISONE
     Indication: BACK PAIN
     Route: 048
     Dates: start: 20200624, end: 20200626
  7. GABAPENTINA 300 MG CAPSULA [Interacting]
     Active Substance: GABAPENTIN
     Indication: NEURALGIA
     Route: 048
     Dates: start: 20200624, end: 20200626
  8. FUROSEMIDA 40 MG 30 COMPRIMIDOS [Concomitant]
     Active Substance: FUROSEMIDE
     Indication: PRODUCT USED FOR UNKNOWN INDICATION
     Dosage: 40 MG
     Route: 048
     Dates: start: 20200612

REACTIONS (4)
  - Delirium [Recovered/Resolved]
  - Confusional state [Recovered/Resolved]
  - Agitation [Recovered/Resolved]
  - Drug interaction [Unknown]

NARRATIVE: CASE EVENT DATE: 20200624
